FAERS Safety Report 20159652 (Version 1)
Quarter: 2021Q4

REPORT INFORMATION
  Report Type: Spontaneous
  Country: US (occurrence: US)
  Receive Date: 20211208
  Receipt Date: 20211208
  Transmission Date: 20220303
  Serious: Yes (Other)
  Sender: FDA-Public Use
  Company Number: ALC2021US006481

PATIENT
  Age: 81 Year
  Sex: Male

DRUGS (4)
  1. BRIMONIDINE TARTRATE [Suspect]
     Active Substance: BRIMONIDINE TARTRATE
     Indication: Product used for unknown indication
     Dosage: UNK UNK, TID
     Route: 065
  2. BRIMONIDINE TARTRATE [Suspect]
     Active Substance: BRIMONIDINE TARTRATE
     Dosage: UNK UNK, TID
     Route: 065
  3. LATANOPROST [Concomitant]
     Active Substance: LATANOPROST
     Indication: Product used for unknown indication
     Dosage: UNK
     Route: 065
  4. METOPROLOL [Concomitant]
     Active Substance: METOPROLOL
     Indication: Product used for unknown indication
     Route: 065

REACTIONS (10)
  - Arrhythmia [Unknown]
  - Blood pressure fluctuation [Unknown]
  - Blood pressure decreased [Unknown]
  - Asthenia [Unknown]
  - Gait disturbance [Unknown]
  - Foreign body sensation in eyes [Unknown]
  - Drug ineffective [Unknown]
  - Fatigue [Unknown]
  - Vision blurred [Unknown]
  - Lacrimation increased [Unknown]
